FAERS Safety Report 6236861-3 (Version None)
Quarter: 2009Q2

REPORT INFORMATION
  Report Type: 
  Country: None (occurrence: None)
  Receive Date: 20090619
  Receipt Date: 20090506
  Transmission Date: 20091009
  Serious: Yes (Life-Threatening, Hospitalization)
  Sender: FDA-Public Use
  Company Number: US-JNJFOC-20090605502

PATIENT
  Age: 63 Year
  Sex: Female

DRUGS (3)
  1. FENTANYL [Suspect]
     Route: 062
  2. FENTANYL [Suspect]
     Indication: PAIN
     Route: 062
  3. MORPHINE [Suspect]
     Indication: BREAKTHROUGH PAIN
     Route: 065

REACTIONS (3)
  - INCORRECT DOSE ADMINISTERED [None]
  - PAIN [None]
  - UNRESPONSIVE TO STIMULI [None]
